FAERS Safety Report 19113012 (Version 1)
Quarter: 2021Q2

REPORT INFORMATION
  Report Type: Spontaneous
  Country: CN (occurrence: CN)
  Receive Date: 20210408
  Receipt Date: 20210408
  Transmission Date: 20210717
  Serious: Yes (Other)
  Sender: FDA-Public Use
  Company Number: CN-ASTRAZENECA-2021A260572

PATIENT
  Age: 20106 Day
  Sex: Male
  Weight: 60 kg

DRUGS (6)
  1. NEXIUM [Suspect]
     Active Substance: ESOMEPRAZOLE MAGNESIUM
     Indication: ABDOMINAL DISCOMFORT
     Route: 048
     Dates: start: 20210308, end: 20210317
  2. DALIFEN [Suspect]
     Active Substance: CEFIXIME
     Indication: CARDIOMYOPATHY
     Route: 048
     Dates: start: 20210310, end: 20210317
  3. FUROSEMIDE. [Suspect]
     Active Substance: FUROSEMIDE
     Indication: CARDIOMYOPATHY
     Route: 048
     Dates: start: 20210308, end: 20210317
  4. SPIRONOLACTONE. [Concomitant]
     Active Substance: SPIRONOLACTONE
     Indication: CARDIOMYOPATHY
     Route: 048
     Dates: start: 20210308, end: 20210317
  5. SACUBITRIL VALSARTAN [Concomitant]
     Indication: CARDIOMYOPATHY
     Route: 048
     Dates: start: 20210308, end: 20210314
  6. XARELTO [Suspect]
     Active Substance: RIVAROXABAN
     Indication: CARDIOMYOPATHY
     Route: 048
     Dates: start: 20210308, end: 20210315

REACTIONS (4)
  - International normalised ratio increased [Unknown]
  - Fibrin D dimer increased [Unknown]
  - Prothrombin time prolonged [Unknown]
  - Activated partial thromboplastin time prolonged [Unknown]

NARRATIVE: CASE EVENT DATE: 20210317
